FAERS Safety Report 23945578 (Version 3)
Quarter: 2025Q3

REPORT INFORMATION
  Report Type: Report from Study
  Country: JP (occurrence: JP)
  Receive Date: 20240606
  Receipt Date: 20250715
  Transmission Date: 20251020
  Serious: Yes (Hospitalization, Other)
  Sender: TAKEDA
  Company Number: JP-JNJFOC-20240582836

PATIENT
  Age: 87 Year
  Sex: Male
  Weight: 60 kg

DRUGS (6)
  1. BORTEZOMIB [Suspect]
     Active Substance: BORTEZOMIB
     Indication: Primary amyloidosis
     Dosage: UNK UNK, QD
     Dates: start: 20231031
  2. DEXAMETHASONE [Suspect]
     Active Substance: DEXAMETHASONE
     Indication: Primary amyloidosis
     Dosage: 20 MILLIGRAM, QD
     Dates: start: 20231031
  3. DARATUMUMAB [Suspect]
     Active Substance: DARATUMUMAB
     Indication: Primary amyloidosis
     Dosage: 1800 MILLIGRAM, QD
     Dates: start: 20231031
  4. CYCLOPHOSPHAMIDE [Suspect]
     Active Substance: CYCLOPHOSPHAMIDE
     Indication: Primary amyloidosis
     Dosage: UNK UNK, QD
     Dates: start: 20231031, end: 20231114
  5. Denosine [Concomitant]
     Indication: Cytomegalovirus gastroenteritis
     Dosage: 75 MILLIGRAM, QD
     Dates: start: 20231204, end: 20231206
  6. Denosine [Concomitant]
     Dosage: 75 MILLIGRAM, QD
     Dates: start: 20231211, end: 20231217

REACTIONS (2)
  - Cytomegalovirus gastroenteritis [Recovered/Resolved]
  - Off label use [Unknown]

NARRATIVE: CASE EVENT DATE: 20231031
